FAERS Safety Report 9370428 (Version 1)
Quarter: 2013Q2

REPORT INFORMATION
  Report Type: Spontaneous
  Country: US (occurrence: US)
  Receive Date: 20130626
  Receipt Date: 20130626
  Transmission Date: 20140414
  Serious: Yes (Other)
  Sender: FDA-Public Use
  Company Number: US-GLAXOSMITHKLINE-A1025547A

PATIENT
  Age: 74 Year
  Sex: Female

DRUGS (4)
  1. HYCAMTIN [Suspect]
     Indication: NEOPLASM MALIGNANT
     Route: 065
     Dates: start: 20130510
  2. UNKNOWN MEDICATION [Concomitant]
  3. NORCO [Concomitant]
  4. ENALAPRIL [Concomitant]

REACTIONS (8)
  - Platelet transfusion [Unknown]
  - Packed red blood cell transfusion [Unknown]
  - Haemoglobin decreased [Unknown]
  - White blood cell count decreased [Unknown]
  - Platelet count decreased [Unknown]
  - Neutropenia [Unknown]
  - Anaemia [Unknown]
  - Dyspnoea [Unknown]
